FAERS Safety Report 5060276-7 (Version None)
Quarter: 2006Q3

REPORT INFORMATION
  Report Type: 
  Country: None (occurrence: None)
  Receive Date: 20060720
  Receipt Date: 20060703
  Transmission Date: 20061208
  Serious: Yes (Hospitalization)
  Sender: FDA-Public Use
  Company Number: 227499

PATIENT
  Age: 72 Year
  Sex: Male

DRUGS (8)
  1. AVASTIN [Suspect]
     Indication: COLORECTAL CANCER
     Dosage: 590 MG, Q3W, INTRAVENOUS
     Route: 042
     Dates: start: 20060428
  2. CAPECITABINE (CAPECITABINE) [Suspect]
     Indication: COLORECTAL CANCER
     Dosage: 2000 MG, BID, ORAL
     Route: 048
     Dates: start: 20060428
  3. OXALIPLATIN (OXALIPLATIN) [Suspect]
     Indication: COLORECTAL CANCER
     Dosage: 260 MG, Q3W, INTRAVENOUS
     Route: 042
     Dates: start: 20060428
  4. PROSCAR [Concomitant]
  5. DURAGESIC-100 [Concomitant]
  6. OXAZEPAM [Concomitant]
  7. OXYCODONE HCL [Concomitant]
  8. ZINC (ZINC NOS) [Concomitant]

REACTIONS (2)
  - HAEMOGLOBIN DECREASED [None]
  - PYREXIA [None]
